FAERS Safety Report 4818171-1 (Version None)
Quarter: 2005Q4

REPORT INFORMATION
  Report Type: 
  Country: None (occurrence: None)
  Receive Date: 20051102
  Receipt Date: 20051026
  Transmission Date: 20060501
  Serious: Yes (Hospitalization)
  Sender: FDA-Public Use
  Company Number: TR-AVENTIS-200519409GDDC

PATIENT
  Age: 50 Year
  Sex: Male

DRUGS (2)
  1. RIFAMPICIN [Suspect]
     Indication: BRUCELLOSIS
     Dosage: DOSE: UNK
  2. TETRACYCLINE [Concomitant]
     Indication: BRUCELLOSIS

REACTIONS (6)
  - HYPERTHYROIDISM [None]
  - PANCREATITIS [None]
  - RALES [None]
  - RENAL FAILURE ACUTE [None]
  - THYROID NEOPLASM [None]
  - TUBULOINTERSTITIAL NEPHRITIS [None]
